FAERS Safety Report 7489880-3 (Version None)
Quarter: 2011Q2

REPORT INFORMATION
  Report Type: 
  Country: None (occurrence: None)
  Receive Date: 20110511
  Receipt Date: 20110504
  Transmission Date: 20111010
  Serious: Yes (Hospitalization, Other)
  Sender: FDA-Public Use
  Company Number: 2009AC000365

PATIENT
  Age: 56 Year
  Sex: Female

DRUGS (29)
  1. DIGOXIN [Suspect]
     Indication: ATRIAL FIBRILLATION
     Dosage: 0.125 MG;QD;PO
     Route: 048
     Dates: start: 19970101, end: 20060101
  2. DIGOXIN [Suspect]
     Dosage: 0.375 MG;BIW;PO
     Route: 048
     Dates: start: 20071129, end: 20080403
  3. SYNTHROID [Concomitant]
  4. MAGNESIUM SULFATE [Concomitant]
  5. ATENOLOL [Concomitant]
  6. TUSSIONEX [Concomitant]
  7. DECADRON [Concomitant]
  8. DIGOXIN [Suspect]
     Dosage: 0.25 MG;QD;PO
     Route: 048
     Dates: start: 20080501
  9. ASPIRIN [Concomitant]
  10. PROVERA [Concomitant]
  11. DIGOXIN [Suspect]
     Dosage: 0.250 MG
     Dates: start: 20071129, end: 20080403
  12. VITAMIN E [Concomitant]
  13. POTASSIUM CHLORIDE [Concomitant]
  14. ZINC [Concomitant]
  15. LEVOTHROXIN [Concomitant]
  16. ZYRTEC [Concomitant]
  17. OMEPRAZOLE [Concomitant]
  18. BENADRYL [Concomitant]
  19. MELOXICAM [Concomitant]
  20. SINEQUAN [Concomitant]
  21. ASCORBIC ACID [Concomitant]
  22. LEVOTHYROXINE SODIUM [Concomitant]
  23. FAMOTIDINE [Concomitant]
  24. PREDISONE DOSEPAK [Concomitant]
  25. LEVOTHYROXINE SODIUM [Concomitant]
  26. PROPAFENONE HCL [Concomitant]
  27. CEPHALEXIN [Concomitant]
  28. ZITHROMYCIN [Concomitant]
  29. PREMARIN [Concomitant]

REACTIONS (45)
  - ANXIETY [None]
  - ANHEDONIA [None]
  - ATRIAL FIBRILLATION [None]
  - INCORRECT DOSE ADMINISTERED [None]
  - HYPOTHYROIDISM [None]
  - SINUSITIS [None]
  - LABILE HYPERTENSION [None]
  - RENAL COLIC [None]
  - PALPITATIONS [None]
  - DYSPHAGIA [None]
  - BRONCHITIS [None]
  - RHINITIS [None]
  - ECONOMIC PROBLEM [None]
  - CARDIOACTIVE DRUG LEVEL DECREASED [None]
  - INFLAMMATION [None]
  - INSOMNIA [None]
  - SNORING [None]
  - SINUS BRADYCARDIA [None]
  - CARDIAC DISORDER [None]
  - PAIN [None]
  - SURGERY [None]
  - RHINITIS ALLERGIC [None]
  - OBSTRUCTION [None]
  - INFECTION [None]
  - MULTIPLE INJURIES [None]
  - CARDIOACTIVE DRUG LEVEL INCREASED [None]
  - HYPERTHYROIDISM [None]
  - FATIGUE [None]
  - FEELING ABNORMAL [None]
  - VENTRICULAR EXTRASYSTOLES [None]
  - SENSATION OF FOREIGN BODY [None]
  - MALAISE [None]
  - BLOOD THYROID STIMULATING HORMONE DECREASED [None]
  - FAECAL INCONTINENCE [None]
  - TINNITUS [None]
  - URTICARIA [None]
  - NIGHT SWEATS [None]
  - BUNDLE BRANCH BLOCK LEFT [None]
  - NODAL ARRHYTHMIA [None]
  - SINOBRONCHITIS [None]
  - ANGIOEDEMA [None]
  - WEIGHT DECREASED [None]
  - HYPERSOMNIA [None]
  - GASTROOESOPHAGEAL REFLUX DISEASE [None]
  - HEADACHE [None]
